FAERS Safety Report 23063377 (Version 3)
Quarter: 2024Q3

REPORT INFORMATION
  Report Type: Spontaneous
  Country: US (occurrence: US)
  Receive Date: 20231013
  Receipt Date: 20240717
  Transmission Date: 20241016
  Serious: Yes (Hospitalization)
  Sender: GLAXOSMITHKLINE
  Company Number: US-GSK-US2023136341

PATIENT

DRUGS (1)
  1. TRELEGY ELLIPTA [Suspect]
     Active Substance: FLUTICASONE FUROATE\UMECLIDINIUM BROMIDE\VILANTEROL TRIFENATATE
     Indication: Chronic obstructive pulmonary disease
     Dosage: 1 PUFF(S), 100/62.5/25MCG INH 30
     Route: 055
     Dates: start: 20230101

REACTIONS (4)
  - Cough [Unknown]
  - Retching [Unknown]
  - Secretion discharge [Unknown]
  - Product dose omission issue [Unknown]
